FAERS Safety Report 5866926-7 (Version None)
Quarter: 2008Q3

REPORT INFORMATION
  Report Type: 
  Country: None (occurrence: None)
  Receive Date: 20080902
  Receipt Date: 20080825
  Transmission Date: 20090109
  Serious: Yes (Hospitalization)
  Sender: FDA-Public Use
  Company Number: FR-JNJFOC-20080805647

PATIENT
  Age: 52 Year
  Sex: Male

DRUGS (3)
  1. REMICADE [Suspect]
     Dosage: THIRD INFUSION
     Route: 042
  2. REMICADE [Suspect]
     Dosage: END OF JUL-2008, SECOND INFUSION
     Route: 042
  3. REMICADE [Suspect]
     Indication: SPONDYLOARTHROPATHY
     Dosage: BEGINNING OF JUL-2008, FIRST INFUSION
     Route: 042

REACTIONS (8)
  - CHILLS [None]
  - HEADACHE [None]
  - HYPERTENSION [None]
  - INFUSION RELATED REACTION [None]
  - PARAESTHESIA [None]
  - PYREXIA [None]
  - T-LYMPHOCYTE COUNT DECREASED [None]
  - THROMBOCYTOPENIA [None]
